FAERS Safety Report 6641951-7 (Version None)
Quarter: 2010Q1

REPORT INFORMATION
  Report Type: 
  Country: None (occurrence: None)
  Receive Date: 20100319
  Receipt Date: 20100309
  Transmission Date: 20100710
  Serious: Yes (Hospitalization)
  Sender: FDA-Public Use
  Company Number: NL-BAYER-201018636GPV

PATIENT
  Age: 35 Year
  Sex: Female
  Weight: 63 kg

DRUGS (1)
  1. MIRENA [Suspect]
     Indication: MENORRHAGIA
     Route: 015
     Dates: start: 20080815, end: 20100115

REACTIONS (15)
  - ABDOMINAL PAIN LOWER [None]
  - BALANCE DISORDER [None]
  - BODY TEMPERATURE INCREASED [None]
  - DISTURBANCE IN ATTENTION [None]
  - DIZZINESS [None]
  - DYSGEUSIA [None]
  - FATIGUE [None]
  - GASTROINTESTINAL PAIN [None]
  - HEADACHE [None]
  - MOOD ALTERED [None]
  - NAUSEA [None]
  - NIGHT SWEATS [None]
  - SENSORY DISTURBANCE [None]
  - VISUAL ACUITY REDUCED [None]
  - WEIGHT DECREASED [None]
